FAERS Safety Report 8306570-5 (Version None)
Quarter: 2012Q2

REPORT INFORMATION
  Report Type: 
  Country: None (occurrence: None)
  Receive Date: 20120420
  Receipt Date: 20120420
  Transmission Date: 20120825
  Serious: Yes (Hospitalization)
  Sender: FDA-Public Use
  Company Number: None

PATIENT
  Age: 63 Year
  Sex: Male
  Weight: 66 kg

DRUGS (2)
  1. MORPHINE [Suspect]
     Indication: PAIN
     Dosage: 15 MG PRN PO
     Route: 048
     Dates: start: 20120214, end: 20120216
  2. OXYCODONE HCL [Suspect]
     Dosage: 5 MG PRN PO
     Route: 048
     Dates: start: 20120112, end: 20120216

REACTIONS (3)
  - CONFUSIONAL STATE [None]
  - MENTAL STATUS CHANGES [None]
  - DIZZINESS [None]
